FAERS Safety Report 5705613-2 (Version None)
Quarter: 2008Q2

REPORT INFORMATION
  Report Type: 
  Country: None (occurrence: None)
  Receive Date: 20080411
  Receipt Date: 20080326
  Transmission Date: 20081010
  Serious: Yes (Life-Threatening, Hospitalization)
  Sender: FDA-Public Use
  Company Number: 2001-04-0158

PATIENT
  Age: 39 Year
  Sex: Female
  Weight: 59 kg

DRUGS (6)
  1. VIRAFERONPEG (PEGINTERFERON ALFA-2B) (PEGINTERFERON ALFA-2B) [Suspect]
     Indication: HEPATITIS C
     Dosage: 80 MCG; QW; SC
     Route: 058
     Dates: start: 20010206, end: 20010326
  2. REBETOL [Suspect]
     Indication: HEPATITIS C
     Dosage: 800 MG; QD; PO
     Route: 048
     Dates: start: 20010206, end: 20010326
  3. ZERIT [Suspect]
     Indication: HIV INFECTION
     Dosage: 60 MG; QD;PO
     Route: 048
     Dates: start: 20010117, end: 20010328
  4. VIDEX [Suspect]
     Indication: HIV INFECTION
     Dosage: 400 MG; QD; PO
     Route: 048
     Dates: start: 20010117, end: 20010328
  5. ZIAGEN [Suspect]
     Indication: ILL-DEFINED DISORDER
     Dosage: 300 MG; BID; PO
     Route: 048
     Dates: start: 20010117, end: 20010328
  6. SEROPRAM (CITALOPRAM HBR) (NO PREF. NAME) [Suspect]
     Indication: HIV INFECTION
     Dosage: 30 MG; BID; PO
     Route: 048

REACTIONS (5)
  - DEHYDRATION [None]
  - ILL-DEFINED DISORDER [None]
  - LACTIC ACIDOSIS [None]
  - PANCREATITIS ACUTE [None]
  - THROMBOCYTOPENIA [None]
